FAERS Safety Report 25709340 (Version 1)
Quarter: 2025Q3

REPORT INFORMATION
  Report Type: Spontaneous
  Country: JP (occurrence: JP)
  Receive Date: 20250821
  Receipt Date: 20250821
  Transmission Date: 20251021
  Serious: Yes (Hospitalization, Other)
  Sender: Phathom Pharmaceuticals
  Company Number: JP-PHATHOM PHARMACEUTICALS INC.-2025PHT02212

PATIENT
  Age: 8 Decade
  Sex: Male
  Weight: 47 kg

DRUGS (12)
  1. VONOPRAZAN FUMARATE [Suspect]
     Active Substance: VONOPRAZAN FUMARATE
     Indication: Product used for unknown indication
     Route: 048
  2. SPIRONOLACTONE [Concomitant]
     Active Substance: SPIRONOLACTONE
  3. FUROSEMIDE [Concomitant]
     Active Substance: FUROSEMIDE
  4. RIVAROXABAN [Concomitant]
     Active Substance: RIVAROXABAN
  5. ASPIRIN [Concomitant]
     Active Substance: ASPIRIN
  6. AMLODIPINE [Concomitant]
     Active Substance: AMLODIPINE BESYLATE
  7. BISOPROLOL [Concomitant]
     Active Substance: BISOPROLOL
  8. FEBUXOSTAT [Concomitant]
     Active Substance: FEBUXOSTAT
  9. LEVETIRACETAM [Concomitant]
     Active Substance: LEVETIRACETAM
  10. QUETIAPINE [Concomitant]
     Active Substance: QUETIAPINE
  11. METHYLCOBALAMIN [Concomitant]
     Active Substance: METHYLCOBALAMIN
  12. LUBIPROSTONE [Concomitant]
     Active Substance: LUBIPROSTONE

REACTIONS (2)
  - Pericarditis constrictive [Unknown]
  - Immunoglobulin G4 related disease [Unknown]
